FAERS Safety Report 4613676-0 (Version None)
Quarter: 2005Q1

REPORT INFORMATION
  Report Type: 
  Country: None (occurrence: None)
  Receive Date: 20050321
  Receipt Date: 20050310
  Transmission Date: 20050727
  Serious: Yes (Disabling)
  Sender: FDA-Public Use
  Company Number: 200510680EU

PATIENT
  Age: 73 Year
  Sex: Female

DRUGS (10)
  1. LANTUS [Suspect]
     Indication: DIABETES MELLITUS NON-INSULIN-DEPENDENT
     Dosage: DOSE: 32-34
     Route: 058
     Dates: start: 20040101, end: 20050101
  2. LESCOL [Concomitant]
     Indication: HYPERCHOLESTEROLAEMIA
     Route: 048
     Dates: start: 20020101
  3. COZAAR [Concomitant]
     Indication: HYPERTONIA
     Dosage: DOSE: 50/12.5
     Route: 048
     Dates: start: 19980306
  4. PLENDIL [Concomitant]
     Indication: HYPERTONIA
     Route: 048
  5. EMCONCOR [Concomitant]
     Route: 048
  6. DIFORMIN [Concomitant]
     Indication: DIABETES MELLITUS NON-INSULIN-DEPENDENT
     Dosage: DOSE: 5 TABLETS
     Route: 048
  7. AMARYL [Concomitant]
     Indication: DIABETES MELLITUS NON-INSULIN-DEPENDENT
     Dosage: DOSE: 2 TABLETS
     Route: 048
  8. DISPERIN                                /FIN/ [Concomitant]
     Route: 048
  9. CALCICHEW [Concomitant]
     Indication: MINERAL SUPPLEMENTATION
     Route: 048
  10. VITAMIN D [Concomitant]
     Indication: VITAMIN SUPPLEMENTATION
     Route: 048

REACTIONS (3)
  - EYE DEGENERATIVE DISORDER [None]
  - GLYCOSYLATED HAEMOGLOBIN INCREASED [None]
  - VISUAL ACUITY REDUCED [None]
